FAERS Safety Report 10235480 (Version 2)
Quarter: 2014Q2

REPORT INFORMATION
  Report Type: Report from Study
  Country: US (occurrence: US)
  Receive Date: 20140613
  Receipt Date: 20140620
  Transmission Date: 20141212
  Serious: Yes (Hospitalization)
  Sender: FDA-Public Use
  Company Number: US-PFIZER INC-2014153111

PATIENT
  Age: 84 Year
  Sex: Male
  Weight: 75.28 kg

DRUGS (9)
  1. AXITINIB [Suspect]
     Indication: ADENOCARCINOMA OF COLON
     Dosage: 3 MG, COURSE NUMBER: C1D1
     Route: 048
     Dates: start: 20140122, end: 20140531
  2. FLUOROURACIL [Suspect]
     Indication: ADENOCARCINOMA OF COLON
     Dosage: 824 UNK, CYCLIC (C4)
     Route: 040
     Dates: start: 20140122
  3. FLUOROURACIL [Suspect]
     Dosage: CYCLIC (C4) DOSE UNSPECIFIED (24 HOURS INFUSION)
     Route: 041
     Dates: start: 20140122
  4. LEUCOVORIN [Suspect]
     Indication: ADENOCARCINOMA OF COLON
     Dosage: 824 UNK, CYCLIC (C4)
     Route: 042
     Dates: start: 20140122
  5. BEVACIZUMAB [Suspect]
     Indication: ADENOCARCINOMA OF COLON
     Dosage: 455 UNK, CYCLIC (C4)
     Route: 042
     Dates: start: 20140122
  6. ATIVAN [Concomitant]
     Indication: ANXIETY
     Dosage: 0.5 MG, AS NEEDED Q6
     Route: 048
     Dates: start: 20131211
  7. HYDROCODONE [Concomitant]
     Indication: PAIN
     Dosage: 5/325 MG
     Dates: start: 20131230
  8. AMBIEN [Concomitant]
     Indication: INSOMNIA
     Dosage: 10 MG, AS NEEDED HS
     Dates: start: 20100209
  9. IMODIUM A-D [Concomitant]
     Indication: DIARRHOEA
     Dosage: 1 OR 2 TABS, AS NEEDED
     Dates: start: 20140125

REACTIONS (2)
  - Fall [Recovered/Resolved]
  - Injury [Recovered/Resolved]
